FAERS Safety Report 15264812 (Version 1)
Quarter: 2018Q3

REPORT INFORMATION
  Report Type: Spontaneous
  Country: US (occurrence: US)
  Receive Date: 20180723
  Receipt Date: 20180723
  Transmission Date: 20181010
  Serious: Yes (Hospitalization, Other)
  Sender: FDA-Public Use
  Company Number: None

PATIENT
  Age: 67 Year
  Sex: Male
  Weight: 74.25 kg

DRUGS (2)
  1. LIDOVIN [Suspect]
     Active Substance: LIDOCAINE HYDROCHLORIDE ANHYDROUS
  2. LEXAZIN [Suspect]
     Active Substance: ASCORBIC ACID\CHOLECALCIFEROL\COENZYME Q10, (2Z)-\FOLIC ACID\METHYLCOBALAMIN\NADH\PYRIDOXAL PHOSPHATE ANHYDROUS\THIAMINE HYDROCHLORIDE
     Route: 048

REACTIONS (5)
  - Urticaria [None]
  - Suspected counterfeit product [None]
  - Application site burn [None]
  - Hypersensitivity [None]
  - Product use in unapproved indication [None]
